FAERS Safety Report 14992360 (Version 1)
Quarter: 2018Q2

REPORT INFORMATION
  Report Type: Spontaneous
  Country: DE (occurrence: DE)
  Receive Date: 20180609
  Receipt Date: 20180609
  Transmission Date: 20180711
  Serious: Yes (Hospitalization)
  Sender: FDA-Public Use
  Company Number: DE-TEVA-2018-DE-903135

PATIENT
  Age: 46 Year
  Sex: Male
  Weight: 110 kg

DRUGS (9)
  1. PROPYLTHIOURACIL. [Concomitant]
     Active Substance: PROPYLTHIOURACIL
     Dosage: 1-1-1-0
     Route: 048
  2. ETANERCEPT [Concomitant]
     Active Substance: ETANERCEPT
     Dosage: ACCORDING TO SCHEME, PRE-FILLED SYRINGES
     Route: 058
  3. INDOMETACIN [Concomitant]
     Active Substance: INDOMETHACIN
     Dosage: REQUIREMENT
     Route: 048
  4. ATORVASTATIN [Concomitant]
     Active Substance: ATORVASTATIN
     Dosage: 1-0-0-0
     Route: 048
  5. COLECALCIFEROL [Concomitant]
     Active Substance: CHOLECALCIFEROL
     Dosage: 20000 IU / WEEK, 1-0-0-0, CAPSULES
     Route: 048
  6. BISOPROLOL [Concomitant]
     Active Substance: BISOPROLOL
     Dosage: 0.5-0-0.5-0
     Route: 048
  7. RAMIPRIL. [Concomitant]
     Active Substance: RAMIPRIL
     Dosage: 1-0-0-0
     Route: 048
  8. AMIODARONE [Suspect]
     Active Substance: AMIODARONE
     Dosage: 1-0-0-0
     Route: 048
  9. EPLERENONE. [Concomitant]
     Active Substance: EPLERENONE
     Dosage: 1-0-0-0
     Route: 048

REACTIONS (3)
  - Tachycardia [Unknown]
  - Hyperthyroidism [Unknown]
  - Ventricular tachycardia [Unknown]
